FAERS Safety Report 13973883 (Version 2)
Quarter: 2017Q4

REPORT INFORMATION
  Report Type: Report from Study
  Country: US (occurrence: US)
  Receive Date: 20170915
  Receipt Date: 20171023
  Transmission Date: 20180321
  Serious: Yes (Hospitalization, Other)
  Sender: FDA-Public Use
  Company Number: US-SAOL THERAPEUTICS-2017SAO01440

PATIENT
  Age: 65 Year
  Sex: Male
  Weight: 192 kg

DRUGS (16)
  1. DILAUDID [Suspect]
     Active Substance: HYDROMORPHONE HYDROCHLORIDE
     Dosage: 1.410 MG, \DAY MAX
     Route: 037
     Dates: end: 2017
  2. BUPIVACAINE. [Suspect]
     Active Substance: BUPIVACAINE
     Dosage: 6.694 MG, \DAY MAX
     Route: 037
     Dates: start: 20170417
  3. CLONIDINE. [Suspect]
     Active Substance: CLONIDINE
     Dosage: 282 ?G, \DAY MAX
     Route: 037
     Dates: end: 2017
  4. CLONIDINE. [Suspect]
     Active Substance: CLONIDINE
     Dosage: 50.13 ?G, \DAY
     Route: 037
     Dates: start: 20170417
  5. CLONIDINE. [Suspect]
     Active Substance: CLONIDINE
     Dosage: 89.25 ?G, \DAY MAX
     Route: 037
     Dates: start: 20170417
  6. COMPOUNDED BACLOFEN [Suspect]
     Active Substance: BACLOFEN
     Dosage: 282 ?G, \DAY MAX
     Dates: end: 2017
  7. BUPIVACAINE. [Suspect]
     Active Substance: BUPIVACAINE
     Dosage: 21.150 MG, \DAY MAX
     Route: 037
     Dates: end: 2017
  8. CLONIDINE. [Suspect]
     Active Substance: CLONIDINE
     Dosage: 164.77 ?G, \DAY
     Route: 037
     Dates: end: 2017
  9. DILAUDID [Suspect]
     Active Substance: HYDROMORPHONE HYDROCHLORIDE
     Dosage: 0.823 MG, \DAY
     Route: 037
     Dates: end: 2017
  10. DILAUDID [Suspect]
     Active Substance: HYDROMORPHONE HYDROCHLORIDE
     Dosage: 0.446 MG, \DAY MAX
     Route: 037
     Dates: start: 20170417
  11. BUPIVACAINE. [Suspect]
     Active Substance: BUPIVACAINE
     Dosage: 12.358 MG, \DAY
     Route: 037
     Dates: end: 2017
  12. COMPOUNDED BACLOFEN [Suspect]
     Active Substance: BACLOFEN
     Dosage: 89.25 ?G, \DAY MAX
     Dates: start: 20170417
  13. COMPOUNDED BACLOFEN [Suspect]
     Active Substance: BACLOFEN
     Dosage: 50.13 ?G, \DAY
     Route: 037
     Dates: start: 20170417
  14. BUPIVACAINE. [Suspect]
     Active Substance: BUPIVACAINE
     Dosage: 3.760 MG, \DAY
     Route: 037
     Dates: start: 20170417
  15. DILAUDID [Suspect]
     Active Substance: HYDROMORPHONE HYDROCHLORIDE
     Dosage: 0.250 MG, \DAY
     Route: 037
     Dates: start: 20170417
  16. COMPOUNDED BACLOFEN [Suspect]
     Active Substance: BACLOFEN
     Dosage: 164.77 ?G, \DAY
     Route: 037
     Dates: end: 2017

REACTIONS (7)
  - Hypovolaemia [Recovered/Resolved]
  - Asthenia [Recovered/Resolved]
  - Drug withdrawal syndrome [Recovered/Resolved]
  - Drug dose omission [Recovered/Resolved]
  - Pain [Recovered/Resolved]
  - Implant site pain [Recovered/Resolved]
  - Diarrhoea [Recovered/Resolved]

NARRATIVE: CASE EVENT DATE: 2017
